FAERS Safety Report 20991196 (Version 1)
Quarter: 2022Q2

REPORT INFORMATION
  Report Type: Spontaneous
  Country: US (occurrence: US)
  Receive Date: 20220622
  Receipt Date: 20220622
  Transmission Date: 20220721
  Serious: No
  Sender: FDA-Public Use
  Company Number: US-IGSA-BIG0014619

PATIENT
  Sex: Female

DRUGS (2)
  1. HYPERRAB [Suspect]
     Active Substance: HUMAN RABIES VIRUS IMMUNE GLOBULIN
     Indication: Exposure to communicable disease
     Dosage: UNK UNK, SINGLE
     Route: 030
     Dates: start: 20210507, end: 20210507
  2. RABIES VACCINE [Suspect]
     Active Substance: RABIES VACCINE
     Indication: Exposure to communicable disease
     Dosage: UNK
     Route: 030
     Dates: start: 20210507, end: 20210507

REACTIONS (8)
  - Injection site pain [Unknown]
  - Nightmare [Unknown]
  - Insomnia [Unknown]
  - Lethargy [Unknown]
  - Musculoskeletal stiffness [Unknown]
  - Back pain [Unknown]
  - Headache [Unknown]
  - Muscle twitching [Unknown]

NARRATIVE: CASE EVENT DATE: 20210507
